FAERS Safety Report 8454212-0 (Version None)
Quarter: 2012Q2

REPORT INFORMATION
  Report Type: 
  Country: None (occurrence: None)
  Receive Date: 20120620
  Receipt Date: 20090422
  Transmission Date: 20120825
  Serious: Yes (Other)
  Sender: FDA-Public Use
  Company Number: TR-ROCHE-1079496

PATIENT
  Sex: Female

DRUGS (1)
  1. XOLAIR [Suspect]
     Indication: ASTHMA
     Route: 058
     Dates: start: 20081229, end: 20090101

REACTIONS (10)
  - MALAISE [None]
  - BLOOD DISORDER [None]
  - DYSPNOEA [None]
  - COUGH [None]
  - IMMUNODEFICIENCY [None]
  - FATIGUE [None]
  - THROAT IRRITATION [None]
  - MIDDLE INSOMNIA [None]
  - WEIGHT INCREASED [None]
  - GAIT DISTURBANCE [None]
